FAERS Safety Report 20589505 (Version 2)
Quarter: 2022Q1

REPORT INFORMATION
  Report Type: Spontaneous
  Country: FR (occurrence: FR)
  Receive Date: 20220314
  Receipt Date: 20220320
  Transmission Date: 20220423
  Serious: Yes (Hospitalization, Other)
  Sender: FDA-Public Use
  Company Number: FR-NOVARTISPH-NVSC2022FR056479

PATIENT
  Age: 72 Year
  Sex: Male
  Weight: 87 kg

DRUGS (12)
  1. POLYETHYLENE GLYCOL 4000 [Suspect]
     Active Substance: POLYETHYLENE GLYCOL 4000
     Indication: Constipation
     Dosage: 2 DOSAGE FORM, QD
     Route: 048
     Dates: start: 20220203
  2. FENTANYL CITRATE [Suspect]
     Active Substance: FENTANYL CITRATE
     Indication: Sedation
     Dosage: 50 UG
     Route: 042
     Dates: start: 20220131
  3. METOCLOPRAMIDE [Suspect]
     Active Substance: METOCLOPRAMIDE
     Indication: Nausea
     Dosage: 10 MG, Q8H
     Route: 042
     Dates: start: 20220201, end: 20220208
  4. DEXAMETHASONE [Suspect]
     Active Substance: DEXAMETHASONE
     Indication: COVID-19 pneumonia
     Dosage: 6 MG, QD
     Route: 042
     Dates: start: 20220126
  5. MIDAZOLAM [Suspect]
     Active Substance: MIDAZOLAM
     Indication: Sedation
     Dosage: 6 MG, QH
     Route: 042
     Dates: start: 20220131
  6. PANTOPRAZOLE [Suspect]
     Active Substance: PANTOPRAZOLE
     Indication: Abdominal pain upper
     Dosage: 40 MG, QD
     Route: 042
     Dates: start: 20220128, end: 20220209
  7. NOVORAPID [Suspect]
     Active Substance: INSULIN ASPART
     Indication: Diabetes mellitus
     Dosage: 3 DOSAGE FORM
     Route: 058
  8. KAYEXALATE [Suspect]
     Active Substance: SODIUM POLYSTYRENE SULFONATE
     Indication: Hyperkalaemia
     Dosage: 2 DOSAGE FORM, QD
     Route: 048
     Dates: start: 20220203
  9. ATRACURIUM [Suspect]
     Active Substance: ATRACURIUM
     Indication: Endotracheal intubation
     Dosage: 43 MG, QH
     Route: 042
     Dates: start: 20220131
  10. KARDEGIC [Suspect]
     Active Substance: ASPIRIN DL-LYSINE
     Indication: Myocardial ischaemia
     Dosage: 75 MG, QD
     Route: 048
     Dates: end: 20220209
  11. LANTUS [Suspect]
     Active Substance: INSULIN GLARGINE
     Indication: Diabetes mellitus
     Dosage: 24 INTERNATIONAL UNIT, QD
     Route: 058
  12. CALCIPARINE [Suspect]
     Active Substance: HEPARIN CALCIUM
     Indication: Thrombosis prophylaxis
     Dosage: 5000 IU, Q12H
     Route: 058
     Dates: start: 20220126, end: 20220207

REACTIONS (1)
  - Thrombocytopenia [Not Recovered/Not Resolved]

NARRATIVE: CASE EVENT DATE: 20220205
